FAERS Safety Report 6207832-8 (Version None)
Quarter: 2009Q2

REPORT INFORMATION
  Report Type: 
  Country: None (occurrence: None)
  Receive Date: 20090522
  Receipt Date: 20090515
  Transmission Date: 20091009
  Serious: Yes (Hospitalization)
  Sender: FDA-Public Use
  Company Number: GXKR2009IN05152

PATIENT
  Age: 28 Year
  Sex: Male

DRUGS (1)
  1. NALTREXONE (NGX) (NALTREXONE) UNKNOWN [Suspect]
     Indication: DETOXIFICATION
     Dosage: 25 MG, ORAL
     Route: 048

REACTIONS (19)
  - ABDOMINAL PAIN [None]
  - AGITATION [None]
  - COLD SWEAT [None]
  - CONFUSIONAL STATE [None]
  - DEPRESSED LEVEL OF CONSCIOUSNESS [None]
  - DIARRHOEA [None]
  - DRUG WITHDRAWAL SYNDROME [None]
  - HYPERHIDROSIS [None]
  - INSOMNIA [None]
  - LACRIMATION INCREASED [None]
  - MYDRIASIS [None]
  - PAIN [None]
  - PAIN IN EXTREMITY [None]
  - PILOERECTION [None]
  - POSTURE ABNORMAL [None]
  - RESTLESSNESS [None]
  - TACHYCARDIA [None]
  - UNRESPONSIVE TO STIMULI [None]
  - YAWNING [None]
